FAERS Safety Report 17267122 (Version 4)
Quarter: 2020Q2

REPORT INFORMATION
  Report Type: Spontaneous
  Country: HU (occurrence: HU)
  Receive Date: 20200114
  Receipt Date: 20200518
  Transmission Date: 20200713
  Serious: Yes (Hospitalization, Other)
  Sender: FDA-Public Use
  Company Number: NVSC2020HU005928

PATIENT
  Age: 66 Year
  Sex: Female

DRUGS (3)
  1. ADALIMUMAB [Suspect]
     Active Substance: ADALIMUMAB
     Dosage: 80 MG, QMO
     Route: 058
  2. ADALIMUMAB [Suspect]
     Active Substance: ADALIMUMAB
     Indication: RHEUMATOID ARTHRITIS
     Dosage: 80 MILLIGRAM, BIMONTHLY (2 TIMES AT A DOSE OF 80 MG/ MONTH)
     Route: 058
  3. METHOTREXATE. [Suspect]
     Active Substance: METHOTREXATE
     Indication: RHEUMATOID ARTHRITIS
     Dosage: 7.4 MG
     Route: 065

REACTIONS (17)
  - Anaemia [Unknown]
  - Thrombocytosis [Unknown]
  - Panniculitis [Unknown]
  - Rash papular [Unknown]
  - Papule [Unknown]
  - Ischaemic skin ulcer [Unknown]
  - Eschar [Unknown]
  - Pancytopenia [Unknown]
  - Vascular injury [Unknown]
  - Vasculitis necrotising [Unknown]
  - Skin necrosis [Unknown]
  - Infection [Unknown]
  - Necrosis [Unknown]
  - Sepsis [Unknown]
  - Vomiting [Unknown]
  - Immunodeficiency [Unknown]
  - Drug ineffective [Unknown]
